FAERS Safety Report 19495296 (Version 1)
Quarter: 2021Q3

REPORT INFORMATION
  Report Type: Report from Study
  Country: None (occurrence: US)
  Receive Date: 20210705
  Receipt Date: 20210705
  Transmission Date: 20211014
  Serious: Yes (Other)
  Sender: FDA-Public Use
  Company Number: US-ABBVIE-21K-163-3977373-00

PATIENT
  Age: 62 Year
  Sex: Female

DRUGS (1)
  1. HUMIRA [Suspect]
     Active Substance: ADALIMUMAB
     Indication: RHEUMATOID ARTHRITIS
     Route: 058
     Dates: start: 202009

REACTIONS (7)
  - Arthropathy [Unknown]
  - Gait disturbance [Not Recovered/Not Resolved]
  - Knee arthroplasty [Unknown]
  - Procedural pain [Unknown]
  - Ovarian cyst [Unknown]
  - Musculoskeletal stiffness [Unknown]
  - Muscle disorder [Recovering/Resolving]

NARRATIVE: CASE EVENT DATE: 202012
